FAERS Safety Report 7048380-5 (Version None)
Quarter: 2010Q4

REPORT INFORMATION
  Report Type: 
  Country: None (occurrence: None)
  Receive Date: 20101015
  Receipt Date: 20101014
  Transmission Date: 20110411
  Serious: Yes (Death)
  Sender: FDA-Public Use
  Company Number: JP-ABBOTT-10P-087-0651673-00

PATIENT
  Age: 68 Year
  Sex: Male

DRUGS (2)
  1. LEUPROLIDE ACETATE [Suspect]
     Indication: PROSTATE CANCER STAGE IV
     Route: 058
     Dates: start: 20080707, end: 20090316
  2. PREDONINE [Concomitant]
     Indication: POLYMYOSITIS
     Route: 048
     Dates: end: 20090602

REACTIONS (1)
  - INTERSTITIAL LUNG DISEASE [None]
